FAERS Safety Report 11469412 (Version 1)
Quarter: 2015Q3

REPORT INFORMATION
  Report Type: Spontaneous
  Country: JP (occurrence: JP)
  Receive Date: 20150908
  Receipt Date: 20150908
  Transmission Date: 20151125
  Serious: Yes (Other)
  Sender: FDA-Public Use
  Company Number: JP-ABBVIE-15P-087-1459578-00

PATIENT
  Age: 60 Year
  Sex: Male

DRUGS (2)
  1. WARFARIN [Interacting]
     Active Substance: WARFARIN
     Indication: PRODUCT USED FOR UNKNOWN INDICATION
     Route: 065
  2. CLARITH TAB 200MG [Suspect]
     Active Substance: CLARITHROMYCIN
     Indication: CHRONIC SINUSITIS
     Route: 048

REACTIONS (3)
  - Gastrointestinal haemorrhage [Recovered/Resolved]
  - Drug interaction [Unknown]
  - Coagulation time prolonged [Recovered/Resolved]
